FAERS Safety Report 10245313 (Version 5)
Quarter: 2017Q4

REPORT INFORMATION
  Report Type: Report from Study
  Country: DE (occurrence: DE)
  Receive Date: 20140618
  Receipt Date: 20171013
  Transmission Date: 20180320
  Serious: Yes (Hospitalization)
  Sender: FDA-Public Use
  Company Number: DE-ROCHE-1052236

PATIENT
  Age: 66 Year
  Sex: Male
  Weight: 73 kg

DRUGS (22)
  1. ACICLOVIR [Concomitant]
     Active Substance: ACYCLOVIR
     Indication: HERPES ZOSTER
     Route: 065
     Dates: start: 20130222
  2. UROMITEXAN [Concomitant]
     Active Substance: MESNA
     Route: 065
     Dates: start: 20111124, end: 20120308
  3. EMEND [Concomitant]
     Active Substance: APREPITANT
     Indication: PROPHYLAXIS OF NAUSEA AND VOMITING
     Route: 065
     Dates: start: 20111124, end: 20120310
  4. BIOGRASTIM [Concomitant]
     Indication: PYREXIA
     Route: 065
     Dates: start: 20120519, end: 20120523
  5. CIPROBAY [Concomitant]
     Active Substance: CIPROFLOXACIN
     Indication: INFECTION
     Route: 065
     Dates: start: 20120209, end: 20120216
  6. CYCLOPHOSPHAMIDE. [Suspect]
     Active Substance: CYCLOPHOSPHAMIDE
     Indication: NON-HODGKIN^S LYMPHOMA
     Dosage: DATE OF LAST DOSE (1400 MG) PRIOR TO AE ONSET : 08/MAR/2012.
     Route: 042
     Dates: start: 20111124, end: 20120308
  7. RANITIDIN [Concomitant]
     Active Substance: RANITIDINE HYDROCHLORIDE
     Indication: PROPHYLAXIS
     Route: 065
     Dates: start: 20111124
  8. BIOGRASTIM [Concomitant]
     Indication: LEUKOPENIA
     Route: 065
     Dates: start: 20120308, end: 20120310
  9. NOVALGIN [Concomitant]
     Active Substance: METAMIZOLE SODIUM
     Indication: INFECTION PROPHYLAXIS
     Route: 065
     Dates: start: 20120313
  10. PREDNISONE. [Suspect]
     Active Substance: PREDNISONE
     Indication: NON-HODGKIN^S LYMPHOMA
     Dosage: DATE OF LAST DOSE (75 MG) PRIOR TO AE ONSET : 12/MAR/2012.
     Route: 048
     Dates: start: 20111124, end: 20120312
  11. BIOGRASTIM [Concomitant]
     Indication: NEUTROPENIA
     Route: 065
     Dates: start: 20111208
  12. PANTOPRAZOL [Concomitant]
     Active Substance: PANTOPRAZOLE SODIUM
     Indication: PROPHYLAXIS
     Route: 065
     Dates: start: 20111215
  13. GRANISETRON [Concomitant]
     Active Substance: GRANISETRON
     Indication: PROPHYLAXIS OF NAUSEA AND VOMITING
     Route: 065
     Dates: start: 20111124, end: 20120308
  14. RITUXIMAB. [Suspect]
     Active Substance: RITUXIMAB
     Indication: NON-HODGKIN^S LYMPHOMA
     Dosage: DATE OF MOST RECENT DOSE (VOLUME : 710 ML AND DOSE CONCENTRATION : 375 MG/ML) PRIOR TO AE ONSET :29/
     Route: 042
     Dates: start: 20111124
  15. PARACETAMOL [Concomitant]
     Active Substance: ACETAMINOPHEN
     Indication: PROPHYLAXIS
     Route: 065
     Dates: start: 20111124, end: 20130415
  16. DOXORUBICIN [Suspect]
     Active Substance: DOXORUBICIN
     Indication: NON-HODGKIN^S LYMPHOMA
     Dosage: DATE OF LAST DOSE (95 MG) PRIOR TO AE ONSET : 08/MAR/2012.
     Route: 042
     Dates: start: 20111124, end: 20120308
  17. VINCRISTINE [Suspect]
     Active Substance: VINCRISTINE
     Indication: NON-HODGKIN^S LYMPHOMA
     Dosage: DATE OF LAST DOSE (2 MG) PRIOR TO AE ONSET : 08/MAR/2012.
     Route: 040
     Dates: start: 20111124, end: 20120308
  18. METOCLOPRAMIDE. [Concomitant]
     Active Substance: METOCLOPRAMIDE
     Indication: VOMITING
     Route: 065
     Dates: start: 20111215
  19. FENISTIL (GERMANY) [Concomitant]
     Indication: HERPES ZOSTER
     Route: 065
     Dates: start: 20130215
  20. ANAESTHESULF (GERMANY) [Concomitant]
     Indication: HERPES ZOSTER
     Route: 065
     Dates: start: 20130215
  21. BIFITERAL [Concomitant]
     Active Substance: LACTULOSE
     Indication: CONSTIPATION
     Route: 065
     Dates: start: 20120319
  22. CIPROBAY [Concomitant]
     Active Substance: CIPROFLOXACIN
     Indication: PYREXIA
     Route: 065
     Dates: start: 20120511, end: 20120518

REACTIONS (2)
  - Compression fracture [Recovered/Resolved]
  - Thoracic vertebral fracture [Not Recovered/Not Resolved]

NARRATIVE: CASE EVENT DATE: 20120316
